FAERS Safety Report 7480965-4 (Version None)
Quarter: 2011Q2

REPORT INFORMATION
  Report Type: 
  Country: None (occurrence: None)
  Receive Date: 20110506
  Receipt Date: 20110422
  Transmission Date: 20111010
  Serious: Yes (Other)
  Sender: FDA-Public Use
  Company Number: 2011SP018483

PATIENT
  Sex: Female

DRUGS (2)
  1. RIBAVIRIN [Suspect]
     Indication: HEPATITIS
  2. PEG-INTRON [Suspect]
     Indication: HEPATITIS

REACTIONS (7)
  - HEADACHE [None]
  - FATIGUE [None]
  - CHRONIC OBSTRUCTIVE PULMONARY DISEASE [None]
  - CONDITION AGGRAVATED [None]
  - CHILLS [None]
  - FEELING OF BODY TEMPERATURE CHANGE [None]
  - ARTHRALGIA [None]
